FAERS Safety Report 6959297-6 (Version None)
Quarter: 2010Q3

REPORT INFORMATION
  Report Type: 
  Country: None (occurrence: None)
  Receive Date: 20100831
  Receipt Date: 20100811
  Transmission Date: 20110219
  Serious: No
  Sender: FDA-Public Use
  Company Number: US-PFIZER INC-2010101568

PATIENT
  Sex: Female
  Weight: 54.431 kg

DRUGS (3)
  1. XALATAN [Suspect]
     Indication: GLAUCOMA
     Dosage: 1 DROP INTO BOTH EYES ONCE DAILY
     Route: 047
     Dates: start: 20100723
  2. FLUOXETINE [Concomitant]
  3. PREMPRO [Concomitant]
     Dosage: 0.3/1.5 EVERY 4 DAYS

REACTIONS (2)
  - PRURITUS [None]
  - URTICARIA [None]
